FAERS Safety Report 21358207 (Version 3)
Quarter: 2023Q1

REPORT INFORMATION
  Report Type: Other
  Country: BE (occurrence: None)
  Receive Date: 20220921
  Receipt Date: 20230309
  Transmission Date: 20230418
  Serious: No
  Sender: FDA-Public Use
  Company Number: BE-ROCHE-3181129

PATIENT
  Age: 35 Year
  Sex: Female
  Weight: 84 kg

DRUGS (17)
  1. OCRELIZUMAB [Suspect]
     Active Substance: OCRELIZUMAB
     Indication: Relapsing-remitting multiple sclerosis
     Route: 042
     Dates: start: 20200804
  2. OCRELIZUMAB [Suspect]
     Active Substance: OCRELIZUMAB
     Indication: Primary progressive multiple sclerosis
     Route: 042
     Dates: start: 20210219, end: 20210219
  3. OCRELIZUMAB [Suspect]
     Active Substance: OCRELIZUMAB
     Route: 042
     Dates: start: 20200818, end: 20200818
  4. OCRELIZUMAB [Suspect]
     Active Substance: OCRELIZUMAB
     Route: 042
     Dates: start: 20220304, end: 20220304
  5. OCRELIZUMAB [Suspect]
     Active Substance: OCRELIZUMAB
     Route: 042
     Dates: start: 20221007, end: 20221007
  6. OCRELIZUMAB [Suspect]
     Active Substance: OCRELIZUMAB
     Route: 042
     Dates: start: 20210827, end: 20210827
  7. EMCONCOR MITIS [Concomitant]
  8. ETHINYL ESTRADIOL\GESTODENE [Concomitant]
     Active Substance: ETHINYL ESTRADIOL\GESTODENE
  9. NESTROLAN [Concomitant]
  10. CYMBALTA [Concomitant]
     Active Substance: DULOXETINE HYDROCHLORIDE
  11. LEVOCETIRIZINE [Concomitant]
     Active Substance: LEVOCETIRIZINE
  12. OMEPRAZOLE [Concomitant]
     Active Substance: OMEPRAZOLE
  13. SOLU-MEDROL [Concomitant]
     Active Substance: METHYLPREDNISOLONE SODIUM SUCCINATE
     Route: 042
     Dates: start: 20221007, end: 20221007
  14. CETIRIZINE HYDROCHLORIDE [Concomitant]
     Active Substance: CETIRIZINE HYDROCHLORIDE
     Route: 048
     Dates: start: 20221007, end: 20221007
  15. PARACETAMOL FRESENIUS [Concomitant]
     Route: 042
     Dates: start: 20221007, end: 20221007
  16. PANTOPRAZOLE [Concomitant]
     Active Substance: PANTOPRAZOLE
     Route: 048
     Dates: start: 20221007, end: 20221007
  17. PFIZER-BIONTECH COVID-19 VACCINE [Concomitant]
     Active Substance: TOZINAMERAN
     Route: 058
     Dates: start: 20230111, end: 20230111

REACTIONS (2)
  - COVID-19 [Recovered/Resolved]
  - Muscle spasms [Not Recovered/Not Resolved]

NARRATIVE: CASE EVENT DATE: 20220801
